FAERS Safety Report 9509702 (Version 1)
Quarter: 2013Q3

REPORT INFORMATION
  Report Type: Spontaneous
  Country: US (occurrence: US)
  Receive Date: 20130909
  Receipt Date: 20130909
  Transmission Date: 20140515
  Serious: No
  Sender: FDA-Public Use
  Company Number: US-BRISTOL-MYERS SQUIBB COMPANY-17170143

PATIENT
  Age: 39 Year
  Sex: Female

DRUGS (3)
  1. ABILIFY [Suspect]
     Dates: end: 2012
  2. ARMOUR THYROID [Suspect]
     Indication: HYPOTHYROIDISM
     Dosage: TABLETS; AUG-OCT2012 (30MG)?DOSE INCREASED TO 60MG ON OCT2012
     Route: 048
     Dates: start: 201208
  3. ESCITALOPRAM [Suspect]
     Dates: end: 2012

REACTIONS (1)
  - Fungal infection [Not Recovered/Not Resolved]
